FAERS Safety Report 13342278 (Version 1)
Quarter: 2017Q1

REPORT INFORMATION
  Report Type: Spontaneous
  Country: US (occurrence: US)
  Receive Date: 20170316
  Receipt Date: 20170316
  Transmission Date: 20170428
  Serious: No
  Sender: FDA-Public Use
  Company Number: None

PATIENT
  Age: 65 Year
  Sex: Female
  Weight: 53.57 kg

DRUGS (16)
  1. OMNARIS [Concomitant]
     Active Substance: CICLESONIDE
  2. ALLEGRA [Concomitant]
     Active Substance: FEXOFENADINE HYDROCHLORIDE
  3. NEXIUM [Concomitant]
     Active Substance: ESOMEPRAZOLE MAGNESIUM
  4. DIGESTIVE GOLD [Concomitant]
  5. BIOTIN [Concomitant]
     Active Substance: BIOTIN
  6. VIT. D3 [Concomitant]
  7. PAMELOR [Suspect]
     Active Substance: NORTRIPTYLINE HYDROCHLORIDE
     Indication: NERVE INJURY
     Dosage: 1 X  DAY BEDTIME, MOUTH
     Route: 048
     Dates: start: 201609, end: 201702
  8. URINARY FLOW [Concomitant]
  9. OMEGA 3 [Concomitant]
     Active Substance: OMEGA-3 FATTY ACIDS
  10. FLORESTOR [Concomitant]
  11. CALCIUM [Concomitant]
     Active Substance: CALCIUM
  12. GLUTEN FREE DIET SUPPORT [Concomitant]
  13. MACRADANTIN [Concomitant]
  14. SINGULAIR [Concomitant]
     Active Substance: MONTELUKAST SODIUM
  15. FINASTERIDE. [Concomitant]
     Active Substance: FINASTERIDE
  16. PRIMROSE [Concomitant]

REACTIONS (5)
  - Nausea [None]
  - Dizziness [None]
  - Product substitution issue [None]
  - Condition aggravated [None]
  - Lethargy [None]

NARRATIVE: CASE EVENT DATE: 201609
